FAERS Safety Report 23833101 (Version 6)
Quarter: 2025Q1

REPORT INFORMATION
  Report Type: Spontaneous
  Country: AU (occurrence: AU)
  Receive Date: 20240508
  Receipt Date: 20250303
  Transmission Date: 20250409
  Serious: Yes (Hospitalization, Other)
  Sender: MYLAN
  Company Number: AU-MYLANLABS-2024M1040202

PATIENT
  Sex: Female
  Weight: 68 kg

DRUGS (4)
  1. CLOZARIL [Suspect]
     Active Substance: CLOZAPINE
     Indication: Schizophrenia
  2. CLOZARIL [Suspect]
     Active Substance: CLOZAPINE
     Indication: Schizoaffective disorder
  3. CLOZARIL [Suspect]
     Active Substance: CLOZAPINE
  4. PALIPERIDONE [Concomitant]
     Active Substance: PALIPERIDONE
     Indication: Schizoaffective disorder

REACTIONS (6)
  - Malaise [Unknown]
  - Schizoaffective disorder [Unknown]
  - Troponin increased [Not Recovered/Not Resolved]
  - Schizophrenia [Unknown]
  - Myocarditis [Unknown]
  - Off label use [Unknown]
